FAERS Safety Report 15215151 (Version 1)
Quarter: 2018Q3

REPORT INFORMATION
  Report Type: Report from Study
  Country: US (occurrence: US)
  Receive Date: 20180730
  Receipt Date: 20180730
  Transmission Date: 20181010
  Serious: Yes (Other)
  Sender: FDA-Public Use
  Company Number: US-JNJFOC-20180403949

PATIENT
  Age: 73 Year
  Sex: Female

DRUGS (34)
  1. IMBRUVICA [Suspect]
     Active Substance: IBRUTINIB
     Indication: WALDENSTROM^S MACROGLOBULINAEMIA
     Route: 048
     Dates: start: 20171113, end: 20180512
  2. XARELTO [Concomitant]
     Active Substance: RIVAROXABAN
  3. CALCITRIOL. [Concomitant]
     Active Substance: CALCITRIOL
  4. ATROPINE W/DIPHENOXYLATE [Concomitant]
     Active Substance: ATROPINE\DIPHENOXYLATE
  5. THYROID [Concomitant]
     Active Substance: LEVOTHYROXINE\LIOTHYRONINE
  6. UROCIT K [Concomitant]
     Dosage: 10 UNK, UNK
  7. ASPIRIN. [Concomitant]
     Active Substance: ASPIRIN
  8. BIFIDOBACTERIUM LACTIS [Concomitant]
     Active Substance: BIFIDOBACTERIUM ANIMALIS LACTIS
  9. OMEPRAZOLE. [Concomitant]
     Active Substance: OMEPRAZOLE
  10. HEPARIN FLUSH [Concomitant]
     Active Substance: HEPARIN SODIUM
     Dosage: 100 UNITS/ML
  11. IMBRUVICA [Suspect]
     Active Substance: IBRUTINIB
     Indication: WALDENSTROM^S MACROGLOBULINAEMIA
     Dosage: 280 MG, QD
     Route: 048
     Dates: start: 20150424
  12. CEFACLOR. [Concomitant]
     Active Substance: CEFACLOR
  13. CLOPIDOGREL [Concomitant]
     Active Substance: CLOPIDOGREL BISULFATE
  14. ATENOLOL. [Concomitant]
     Active Substance: ATENOLOL
  15. HYOSCYAMINE. [Concomitant]
     Active Substance: HYOSCYAMINE
  16. DESMOPRESSIN [Concomitant]
     Active Substance: DESMOPRESSIN
  17. SOTALOL. [Concomitant]
     Active Substance: SOTALOL
  18. LOSARTAN POTASSIUM. [Concomitant]
     Active Substance: LOSARTAN POTASSIUM
  19. ZOLPIDEM [Concomitant]
     Active Substance: ZOLPIDEM\ZOLPIDEM TARTRATE
  20. ONDANSETRON [Concomitant]
     Active Substance: ONDANSETRON
  21. SALBUTAMOL SULFATE [Concomitant]
     Active Substance: ALBUTEROL SULFATE
  22. IMBRUVICA [Suspect]
     Active Substance: IBRUTINIB
     Indication: WALDENSTROM^S MACROGLOBULINAEMIA
     Route: 048
  23. DICYCLOMINE [Concomitant]
     Active Substance: DICYCLOMINE HYDROCHLORIDE
  24. SODIUM BICARBONATE. [Concomitant]
     Active Substance: SODIUM BICARBONATE
  25. OXYCODONE [Concomitant]
     Active Substance: OXYCODONE
  26. IMBRUVICA [Suspect]
     Active Substance: IBRUTINIB
     Indication: WALDENSTROM^S MACROGLOBULINAEMIA
     Dosage: 280 MG, QD
     Route: 048
     Dates: start: 20150422
  27. PREDNISONE. [Concomitant]
     Active Substance: PREDNISONE
  28. ASCORBIC ACID. [Concomitant]
     Active Substance: ASCORBIC ACID
  29. HYDROXYZINE [Concomitant]
     Active Substance: HYDROXYZINE HYDROCHLORIDE
  30. CYCLOBENZAPRINE. [Concomitant]
     Active Substance: CYCLOBENZAPRINE
  31. CALCITONIN [Concomitant]
     Active Substance: CALCITONIN
  32. PROCHLORPERAZINE. [Concomitant]
     Active Substance: PROCHLORPERAZINE
  33. FUROSEMIDE. [Concomitant]
     Active Substance: FUROSEMIDE
  34. ALLOPURINOL. [Concomitant]
     Active Substance: ALLOPURINOL

REACTIONS (18)
  - Hypokalaemia [Not Recovered/Not Resolved]
  - Diarrhoea [Unknown]
  - Dehydration [Unknown]
  - Urinary tract infection [Not Recovered/Not Resolved]
  - Chronic kidney disease [Not Recovered/Not Resolved]
  - Skin hyperpigmentation [Unknown]
  - Iron deficiency anaemia [Not Recovered/Not Resolved]
  - Carotid artery disease [Not Recovered/Not Resolved]
  - Rhabdomyolysis [Not Recovered/Not Resolved]
  - Ischaemic stroke [Not Recovered/Not Resolved]
  - Subarachnoid haemorrhage [Not Recovered/Not Resolved]
  - Neuropathy peripheral [Unknown]
  - Sepsis [Not Recovered/Not Resolved]
  - Contusion [Unknown]
  - Disease progression [Unknown]
  - Nephrogenic anaemia [Not Recovered/Not Resolved]
  - Klebsiella infection [Not Recovered/Not Resolved]
  - Aortic aneurysm [Not Recovered/Not Resolved]

NARRATIVE: CASE EVENT DATE: 20151020
